FAERS Safety Report 12041868 (Version 3)
Quarter: 2016Q1

REPORT INFORMATION
  Report Type: Report from Study
  Country: US (occurrence: US)
  Receive Date: 20160208
  Receipt Date: 20160328
  Transmission Date: 20160526
  Serious: Yes (Hospitalization)
  Sender: FDA-Public Use
  Company Number: US-ABBVIE-16K-163-1550761-00

PATIENT
  Age: 40 Year
  Sex: Female

DRUGS (1)
  1. HUMIRA [Suspect]
     Active Substance: ADALIMUMAB
     Indication: CROHN^S DISEASE
     Route: 058
     Dates: start: 201507

REACTIONS (11)
  - Nausea [Recovering/Resolving]
  - Incorrect dose administered [Unknown]
  - Constipation [Recovering/Resolving]
  - Injection site pain [Recovered/Resolved]
  - Wrong technique in product usage process [Unknown]
  - Hypophagia [Recovered/Resolved]
  - Cholecystectomy [Unknown]
  - Abdominal pain [Recovering/Resolving]
  - Abdominal distension [Recovered/Resolved]
  - Cystitis [Unknown]
  - Abdominal pain [Recovered/Resolved]

NARRATIVE: CASE EVENT DATE: 201512
